FAERS Safety Report 10086173 (Version 2)
Quarter: 2014Q2

REPORT INFORMATION
  Report Type: Spontaneous
  Country: US (occurrence: US)
  Receive Date: 20140418
  Receipt Date: 20140418
  Transmission Date: 20141212
  Serious: Yes (Other)
  Sender: FDA-Public Use
  Company Number: US-FRI-1000060350

PATIENT
  Sex: Female

DRUGS (4)
  1. FETZIMA [Suspect]
     Indication: DEPRESSION
     Dosage: 20 MG
     Route: 048
     Dates: start: 20140115, end: 20140116
  2. FETZIMA [Suspect]
     Dosage: 40 MG
     Route: 048
     Dates: start: 20140117, end: 20140130
  3. FETZIMA [Suspect]
     Indication: DEPRESSION
     Dosage: 80 MG
     Route: 048
     Dates: start: 20140131, end: 20140225
  4. TRAZODONE [Concomitant]
     Dosage: 50 MG AT BEDTIME

REACTIONS (4)
  - Suicidal ideation [Recovered/Resolved]
  - Depression [Recovered/Resolved]
  - Asthenia [Recovered/Resolved]
  - Apathy [Recovered/Resolved]
